FAERS Safety Report 4953659-4 (Version None)
Quarter: 2006Q1

REPORT INFORMATION
  Report Type: 
  Country: None (occurrence: None)
  Receive Date: 20060324
  Receipt Date: 20051017
  Transmission Date: 20060701
  Serious: Yes (Hospitalization)
  Sender: FDA-Public Use
  Company Number: US-MERCK-0510USA07698

PATIENT
  Age: 48 Year
  Sex: Male
  Weight: 86 kg

DRUGS (6)
  1. VIOXX [Suspect]
     Indication: NECK PAIN
     Route: 048
     Dates: start: 19990501, end: 20020612
  2. VIOXX [Suspect]
     Route: 048
     Dates: start: 19990501, end: 20020612
  3. VIOXX [Suspect]
     Indication: RADICULAR SYNDROME
     Route: 048
     Dates: start: 19990501, end: 20020612
  4. VIOXX [Suspect]
     Route: 048
     Dates: start: 19990501, end: 20020612
  5. NEURONTIN [Concomitant]
     Route: 065
  6. RELAFEN [Concomitant]
     Route: 065

REACTIONS (5)
  - ARRHYTHMIA [None]
  - ARTHROPATHY [None]
  - DRUG ADMINISTRATION ERROR [None]
  - MYOCARDIAL INFARCTION [None]
  - OVERDOSE [None]
